FAERS Safety Report 8555036-6 (Version None)
Quarter: 2012Q3

REPORT INFORMATION
  Report Type: 
  Country: None (occurrence: None)
  Receive Date: 20120731
  Receipt Date: 20120720
  Transmission Date: 20120928
  Serious: Yes (Other)
  Sender: FDA-Public Use
  Company Number: HR-BAXTER-2012BAX007734

PATIENT
  Sex: Male
  Weight: 85 kg

DRUGS (192)
  1. FEIBA [Suspect]
     Route: 042
     Dates: start: 20110421, end: 20110421
  2. FEIBA [Suspect]
     Route: 042
     Dates: start: 20110720, end: 20110720
  3. FEIBA [Suspect]
     Route: 042
     Dates: start: 20110815, end: 20110815
  4. FEIBA [Suspect]
     Route: 042
     Dates: start: 20110819, end: 20110819
  5. FEIBA [Suspect]
     Route: 042
     Dates: start: 20110908, end: 20110908
  6. FEIBA [Suspect]
     Route: 042
     Dates: start: 20110924, end: 20110924
  7. FEIBA [Suspect]
     Route: 042
     Dates: start: 20111004, end: 20111004
  8. FEIBA [Suspect]
     Route: 042
     Dates: start: 20111101, end: 20111101
  9. FEIBA [Suspect]
     Route: 042
     Dates: start: 20111123, end: 20111123
  10. FEIBA [Suspect]
     Route: 042
     Dates: start: 20111203, end: 20111203
  11. FEIBA [Suspect]
     Route: 042
     Dates: start: 20120106, end: 20120106
  12. FEIBA [Suspect]
     Route: 042
     Dates: start: 20120108, end: 20120108
  13. FEIBA [Suspect]
     Route: 042
     Dates: start: 20120116, end: 20120116
  14. FEIBA [Suspect]
     Route: 042
     Dates: start: 20120221, end: 20120221
  15. FEIBA [Suspect]
     Route: 042
     Dates: start: 20120225, end: 20120225
  16. FEIBA [Suspect]
     Route: 042
     Dates: start: 20120306, end: 20120306
  17. FEIBA [Suspect]
     Route: 042
     Dates: start: 20120320, end: 20120320
  18. FEIBA [Suspect]
     Route: 042
     Dates: start: 20110610, end: 20110610
  19. FEIBA [Suspect]
     Route: 042
     Dates: start: 20111118, end: 20111118
  20. FEIBA [Suspect]
     Route: 042
     Dates: start: 20110501, end: 20110501
  21. FEIBA [Suspect]
     Route: 042
     Dates: start: 20110507, end: 20110507
  22. FEIBA [Suspect]
     Route: 042
     Dates: start: 20110529, end: 20110529
  23. FEIBA [Suspect]
     Route: 042
     Dates: start: 20110602, end: 20110602
  24. FEIBA [Suspect]
     Route: 042
     Dates: start: 20110608, end: 20110608
  25. FEIBA [Suspect]
     Route: 042
     Dates: start: 20110712, end: 20110712
  26. FEIBA [Suspect]
     Route: 042
     Dates: start: 20110714, end: 20110714
  27. FEIBA [Suspect]
     Route: 042
     Dates: start: 20110718, end: 20110718
  28. FEIBA [Suspect]
     Route: 042
     Dates: start: 20110811, end: 20110811
  29. FEIBA [Suspect]
     Route: 042
     Dates: start: 20110902, end: 20110902
  30. FEIBA [Suspect]
     Route: 042
     Dates: start: 20110922, end: 20110922
  31. FEIBA [Suspect]
     Route: 042
     Dates: start: 20111107, end: 20111107
  32. FEIBA [Suspect]
     Route: 042
     Dates: start: 20111209, end: 20111209
  33. FEIBA [Suspect]
     Route: 042
     Dates: start: 20111227, end: 20111227
  34. FEIBA [Suspect]
     Route: 042
     Dates: start: 20120118, end: 20120118
  35. FEIBA [Suspect]
     Route: 042
     Dates: start: 20120122, end: 20120122
  36. FEIBA [Suspect]
     Route: 042
     Dates: start: 20120205, end: 20120205
  37. FEIBA [Suspect]
     Indication: PROPHYLAXIS
     Route: 042
     Dates: start: 20110415, end: 20110415
  38. FEIBA [Suspect]
     Route: 042
     Dates: start: 20110427, end: 20110427
  39. FEIBA [Suspect]
     Route: 042
     Dates: start: 20110509, end: 20110509
  40. FEIBA [Suspect]
     Route: 042
     Dates: start: 20110604, end: 20110604
  41. FEIBA [Suspect]
     Route: 042
     Dates: start: 20110606, end: 20110606
  42. FEIBA [Suspect]
     Route: 042
     Dates: start: 20110626, end: 20110626
  43. FEIBA [Suspect]
     Route: 042
     Dates: start: 20110628, end: 20110628
  44. FEIBA [Suspect]
     Route: 042
     Dates: start: 20110630, end: 20110630
  45. FEIBA [Suspect]
     Route: 042
     Dates: start: 20110801, end: 20110801
  46. FEIBA [Suspect]
     Route: 042
     Dates: start: 20110807, end: 20110807
  47. FEIBA [Suspect]
     Route: 042
     Dates: start: 20110823, end: 20110823
  48. FEIBA [Suspect]
     Route: 042
     Dates: start: 20111002, end: 20111002
  49. FEIBA [Suspect]
     Route: 042
     Dates: start: 20111016, end: 20111016
  50. FEIBA [Suspect]
     Route: 042
     Dates: start: 20111024, end: 20111024
  51. FEIBA [Suspect]
     Route: 042
     Dates: start: 20111205, end: 20111205
  52. FEIBA [Suspect]
     Route: 042
     Dates: start: 20111231, end: 20111231
  53. FEIBA [Suspect]
     Route: 042
     Dates: start: 20120112, end: 20120112
  54. FEIBA [Suspect]
     Route: 042
     Dates: start: 20120211, end: 20120211
  55. FEIBA [Suspect]
     Route: 042
     Dates: start: 20120213, end: 20120213
  56. FEIBA [Suspect]
     Route: 042
     Dates: start: 20120217, end: 20120217
  57. FEIBA [Suspect]
     Route: 042
     Dates: start: 20120308, end: 20120308
  58. FEIBA [Suspect]
     Route: 042
     Dates: start: 20120310, end: 20120310
  59. FEIBA [Suspect]
     Route: 042
     Dates: start: 20120316, end: 20120316
  60. FEIBA [Suspect]
     Route: 042
     Dates: start: 20110807, end: 20110807
  61. FEIBA [Suspect]
     Route: 042
     Dates: start: 20120301, end: 20120301
  62. FEIBA [Suspect]
     Route: 042
     Dates: start: 20110429, end: 20110429
  63. FEIBA [Suspect]
     Route: 042
     Dates: start: 20110505, end: 20110505
  64. FEIBA [Suspect]
     Route: 042
     Dates: start: 20110525, end: 20110525
  65. FEIBA [Suspect]
     Route: 042
     Dates: start: 20110527, end: 20110527
  66. FEIBA [Suspect]
     Route: 042
     Dates: start: 20110614, end: 20110614
  67. FEIBA [Suspect]
     Route: 042
     Dates: start: 20110618, end: 20110618
  68. FEIBA [Suspect]
     Route: 042
     Dates: start: 20110622, end: 20110622
  69. FEIBA [Suspect]
     Route: 042
     Dates: start: 20110710, end: 20110710
  70. FEIBA [Suspect]
     Route: 042
     Dates: start: 20110716, end: 20110716
  71. FEIBA [Suspect]
     Route: 042
     Dates: start: 20110730, end: 20110730
  72. FEIBA [Suspect]
     Route: 042
     Dates: start: 20110930, end: 20110930
  73. FEIBA [Suspect]
     Route: 042
     Dates: start: 20111026, end: 20111026
  74. FEIBA [Suspect]
     Route: 042
     Dates: start: 20111115, end: 20111115
  75. FEIBA [Suspect]
     Route: 042
     Dates: start: 20111119, end: 20111119
  76. FEIBA [Suspect]
     Route: 042
     Dates: start: 20111125, end: 20111125
  77. FEIBA [Suspect]
     Route: 042
     Dates: start: 20111207, end: 20111207
  78. FEIBA [Suspect]
     Route: 042
     Dates: start: 20111215, end: 20111215
  79. FEIBA [Suspect]
     Route: 042
     Dates: start: 20111219, end: 20111219
  80. FEIBA [Suspect]
     Route: 042
     Dates: start: 20111225, end: 20111225
  81. FEIBA [Suspect]
     Route: 042
     Dates: start: 20120124, end: 20120124
  82. FEIBA [Suspect]
     Route: 042
     Dates: start: 20120203, end: 20120203
  83. FEIBA [Suspect]
     Route: 042
     Dates: start: 20120209, end: 20120209
  84. FEIBA [Suspect]
     Route: 042
     Dates: start: 20120229, end: 20120229
  85. FEIBA [Suspect]
     Route: 042
     Dates: start: 20120304, end: 20120304
  86. FEIBA [Suspect]
     Route: 042
     Dates: start: 20120328, end: 20120328
  87. FEIBA [Suspect]
     Route: 042
     Dates: start: 20120409, end: 20120409
  88. FEIBA [Suspect]
     Route: 042
     Dates: start: 20120313, end: 20120313
  89. FEIBA [Suspect]
     Route: 042
     Dates: start: 20110417, end: 20110417
  90. FEIBA [Suspect]
     Route: 042
     Dates: start: 20110511, end: 20110511
  91. FEIBA [Suspect]
     Route: 042
     Dates: start: 20110515, end: 20110515
  92. FEIBA [Suspect]
     Route: 042
     Dates: start: 20110531, end: 20110531
  93. FEIBA [Suspect]
     Route: 042
     Dates: start: 20110702, end: 20110702
  94. FEIBA [Suspect]
     Route: 042
     Dates: start: 20110704, end: 20110704
  95. FEIBA [Suspect]
     Route: 042
     Dates: start: 20110706, end: 20110706
  96. FEIBA [Suspect]
     Route: 042
     Dates: start: 20110813, end: 20110813
  97. FEIBA [Suspect]
     Route: 042
     Dates: start: 20110821, end: 20110821
  98. FEIBA [Suspect]
     Route: 042
     Dates: start: 20110912, end: 20110912
  99. FEIBA [Suspect]
     Route: 042
     Dates: start: 20111103, end: 20111103
  100. FEIBA [Suspect]
     Route: 042
     Dates: start: 20111109, end: 20111109
  101. FEIBA [Suspect]
     Route: 042
     Dates: start: 20111121, end: 20111121
  102. FEIBA [Suspect]
     Route: 042
     Dates: start: 20111127, end: 20111127
  103. FEIBA [Suspect]
     Route: 042
     Dates: start: 20111129, end: 20111129
  104. FEIBA [Suspect]
     Route: 042
     Dates: start: 20111211, end: 20111211
  105. FEIBA [Suspect]
     Route: 042
     Dates: start: 20111221, end: 20111221
  106. FEIBA [Suspect]
     Route: 042
     Dates: start: 20111223, end: 20111223
  107. FEIBA [Suspect]
     Route: 042
     Dates: start: 20120102, end: 20120102
  108. FEIBA [Suspect]
     Route: 042
     Dates: start: 20120114, end: 20120114
  109. FEIBA [Suspect]
     Route: 042
     Dates: start: 20120201, end: 20120201
  110. FEIBA [Suspect]
     Route: 042
     Dates: start: 20120324, end: 20120324
  111. FEIBA [Suspect]
     Route: 042
     Dates: start: 20120326, end: 20120326
  112. FEIBA [Suspect]
     Route: 042
     Dates: start: 20120330, end: 20120330
  113. FEIBA [Suspect]
     Route: 042
     Dates: start: 20120405, end: 20120405
  114. FEIBA [Suspect]
     Route: 042
     Dates: start: 20120407, end: 20120407
  115. FEIBA [Suspect]
     Route: 042
     Dates: start: 20110903, end: 20110903
  116. FEIBA [Suspect]
     Route: 042
     Dates: start: 20120226, end: 20120226
  117. FEIBA [Suspect]
     Route: 042
     Dates: start: 20110521, end: 20110521
  118. FEIBA [Suspect]
     Route: 042
     Dates: start: 20110616, end: 20110616
  119. FEIBA [Suspect]
     Route: 042
     Dates: start: 20110620, end: 20110620
  120. FEIBA [Suspect]
     Route: 042
     Dates: start: 20110624, end: 20110624
  121. FEIBA [Suspect]
     Route: 042
     Dates: start: 20110708, end: 20110708
  122. FEIBA [Suspect]
     Route: 042
     Dates: start: 20110722, end: 20110722
  123. FEIBA [Suspect]
     Route: 042
     Dates: start: 20110724, end: 20110724
  124. FEIBA [Suspect]
     Route: 042
     Dates: start: 20110726, end: 20110726
  125. FEIBA [Suspect]
     Route: 042
     Dates: start: 20110803, end: 20110803
  126. FEIBA [Suspect]
     Route: 042
     Dates: start: 20110817, end: 20110817
  127. FEIBA [Suspect]
     Route: 042
     Dates: start: 20110904, end: 20110904
  128. FEIBA [Suspect]
     Route: 042
     Dates: start: 20110906, end: 20110906
  129. FEIBA [Suspect]
     Route: 042
     Dates: start: 20110914, end: 20110914
  130. FEIBA [Suspect]
     Route: 042
     Dates: start: 20110920, end: 20110920
  131. FEIBA [Suspect]
     Route: 042
     Dates: start: 20110926, end: 20110926
  132. FEIBA [Suspect]
     Route: 042
     Dates: start: 20111006, end: 20111006
  133. FEIBA [Suspect]
     Route: 042
     Dates: start: 20111010, end: 20111010
  134. FEIBA [Suspect]
     Route: 042
     Dates: start: 20111020, end: 20111020
  135. FEIBA [Suspect]
     Route: 042
     Dates: start: 20111117, end: 20111117
  136. FEIBA [Suspect]
     Route: 042
     Dates: start: 20111201, end: 20111201
  137. FEIBA [Suspect]
     Route: 042
     Dates: start: 20111229, end: 20111229
  138. FEIBA [Suspect]
     Route: 042
     Dates: start: 20120120, end: 20120120
  139. FEIBA [Suspect]
     Route: 042
     Dates: start: 20120128, end: 20120128
  140. FEIBA [Suspect]
     Route: 042
     Dates: start: 20120215, end: 20120215
  141. FEIBA [Suspect]
     Route: 042
     Dates: start: 20120312, end: 20120312
  142. FEIBA [Suspect]
     Route: 042
     Dates: start: 20120314, end: 20120314
  143. FEIBA [Suspect]
     Route: 042
     Dates: start: 20120322, end: 20120322
  144. FEIBA [Suspect]
     Route: 042
     Dates: start: 20120401, end: 20120401
  145. FEIBA [Suspect]
     Route: 042
     Dates: start: 20120403, end: 20120403
  146. FEIBA [Suspect]
     Route: 042
     Dates: start: 20110425, end: 20110425
  147. FEIBA [Suspect]
     Route: 042
     Dates: start: 20110503, end: 20110503
  148. FEIBA [Suspect]
     Route: 042
     Dates: start: 20110513, end: 20110513
  149. FEIBA [Suspect]
     Route: 042
     Dates: start: 20110610, end: 20110610
  150. FEIBA [Suspect]
     Route: 042
     Dates: start: 20110827, end: 20110827
  151. FEIBA [Suspect]
     Route: 042
     Dates: start: 20110829, end: 20110829
  152. FEIBA [Suspect]
     Route: 042
     Dates: start: 20110831, end: 20110831
  153. FEIBA [Suspect]
     Route: 042
     Dates: start: 20110928, end: 20110928
  154. FEIBA [Suspect]
     Route: 042
     Dates: start: 20111008, end: 20111008
  155. FEIBA [Suspect]
     Route: 042
     Dates: start: 20111012, end: 20111012
  156. FEIBA [Suspect]
     Route: 042
     Dates: start: 20111018, end: 20111018
  157. FEIBA [Suspect]
     Route: 042
     Dates: start: 20111022, end: 20111022
  158. FEIBA [Suspect]
     Route: 042
     Dates: start: 20111030, end: 20111030
  159. FEIBA [Suspect]
     Route: 042
     Dates: start: 20111105, end: 20111105
  160. FEIBA [Suspect]
     Route: 042
     Dates: start: 20111111, end: 20111111
  161. FEIBA [Suspect]
     Route: 042
     Dates: start: 20111213, end: 20111213
  162. FEIBA [Suspect]
     Route: 042
     Dates: start: 20120104, end: 20120104
  163. FEIBA [Suspect]
     Route: 042
     Dates: start: 20120126, end: 20120126
  164. FEIBA [Suspect]
     Route: 042
     Dates: start: 20120130, end: 20120130
  165. FEIBA [Suspect]
     Route: 042
     Dates: start: 20120219, end: 20120219
  166. FEIBA [Suspect]
     Route: 042
     Dates: start: 20120227, end: 20120227
  167. FEIBA [Suspect]
     Route: 042
     Dates: start: 20111128, end: 20111128
  168. FEIBA [Suspect]
     Route: 042
     Dates: start: 20111222, end: 20111222
  169. FEIBA [Suspect]
     Route: 042
     Dates: start: 20110612, end: 20110612
  170. FEIBA [Suspect]
     Route: 042
     Dates: start: 20110910, end: 20110910
  171. KETOPROFEN [Concomitant]
     Route: 048
     Dates: start: 20110610, end: 20110612
  172. FEIBA [Suspect]
     Indication: FACTOR VIII INHIBITION
     Route: 042
     Dates: start: 20110419, end: 20110419
  173. FEIBA [Suspect]
     Route: 042
     Dates: start: 20110423, end: 20110423
  174. FEIBA [Suspect]
     Route: 042
     Dates: start: 20110517, end: 20110517
  175. FEIBA [Suspect]
     Route: 042
     Dates: start: 20110519, end: 20110519
  176. FEIBA [Suspect]
     Route: 042
     Dates: start: 20110523, end: 20110523
  177. FEIBA [Suspect]
     Route: 042
     Dates: start: 20110728, end: 20110728
  178. FEIBA [Suspect]
     Route: 042
     Dates: start: 20110805, end: 20110805
  179. FEIBA [Suspect]
     Route: 042
     Dates: start: 20110809, end: 20110809
  180. FEIBA [Suspect]
     Route: 042
     Dates: start: 20110825, end: 20110825
  181. FEIBA [Suspect]
     Route: 042
     Dates: start: 20110916, end: 20110916
  182. FEIBA [Suspect]
     Route: 042
     Dates: start: 20110918, end: 20110918
  183. FEIBA [Suspect]
     Route: 042
     Dates: start: 20111014, end: 20111014
  184. FEIBA [Suspect]
     Route: 042
     Dates: start: 20111028, end: 20111028
  185. FEIBA [Suspect]
     Route: 042
     Dates: start: 20111113, end: 20111113
  186. FEIBA [Suspect]
     Route: 042
     Dates: start: 20111217, end: 20111217
  187. FEIBA [Suspect]
     Route: 042
     Dates: start: 20120110, end: 20120110
  188. FEIBA [Suspect]
     Route: 042
     Dates: start: 20120207, end: 20120207
  189. FEIBA [Suspect]
     Route: 042
     Dates: start: 20120223, end: 20120223
  190. FEIBA [Suspect]
     Route: 042
     Dates: start: 20120302, end: 20120302
  191. FEIBA [Suspect]
     Route: 042
     Dates: start: 20120318, end: 20120318
  192. FEIBA [Suspect]
     Route: 042
     Dates: start: 20110808, end: 20110808

REACTIONS (1)
  - HEPATITIS B SURFACE ANTIBODY POSITIVE [None]
